FAERS Safety Report 4391729-2 (Version None)
Quarter: 2004Q3

REPORT INFORMATION
  Report Type: 
  Country: None (occurrence: None)
  Receive Date: 20040702
  Receipt Date: 20040423
  Transmission Date: 20050211
  Serious: Yes (Other)
  Sender: FDA-Public Use
  Company Number: 2004UW08489

PATIENT
  Age: 72 Year
  Sex: Male

DRUGS (4)
  1. CRESTOR [Suspect]
     Dosage: 10 MG PO
     Route: 048
  2. COREG [Concomitant]
  3. PLAVIX [Concomitant]
  4. ADVAIR DISKUS 100/50 [Concomitant]

REACTIONS (3)
  - ABNORMAL DREAMS [None]
  - DEREALISATION [None]
  - NIGHTMARE [None]
